FAERS Safety Report 12558992 (Version 1)
Quarter: 2016Q3

REPORT INFORMATION
  Report Type: Report from Study
  Country: US (occurrence: US)
  Receive Date: 20160715
  Receipt Date: 20160715
  Transmission Date: 20161109
  Serious: Yes (Death, Hospitalization, Other)
  Sender: FDA-Public Use
  Company Number: US-BRISTOL-MYERS SQUIBB COMPANY-BMS-2016-054751

PATIENT
  Age: 70 Year
  Sex: Male
  Weight: 105.9 kg

DRUGS (3)
  1. CYTARABINE. [Suspect]
     Active Substance: CYTARABINE
     Indication: ACUTE MYELOID LEUKAEMIA
     Dosage: 13860 MG, UNK
     Route: 065
     Dates: start: 20160606, end: 20160609
  2. IDARUBICIN [Suspect]
     Active Substance: IDARUBICIN
     Indication: ACUTE MYELOID LEUKAEMIA
     Dosage: 84 MG, UNK
     Route: 065
     Dates: start: 20160606, end: 20160608
  3. PRAVASTATIN SODIUM. [Suspect]
     Active Substance: PRAVASTATIN SODIUM
     Indication: ACUTE MYELOID LEUKAEMIA
     Dosage: 10240 MG, UNK
     Route: 065
     Dates: start: 20160603, end: 20160610

REACTIONS (3)
  - Fall [Not Recovered/Not Resolved]
  - Death [Fatal]
  - Lung infection [Not Recovered/Not Resolved]

NARRATIVE: CASE EVENT DATE: 20160627
